FAERS Safety Report 9343733 (Version 1)
Quarter: 2013Q2

REPORT INFORMATION
  Report Type: Spontaneous
  Country: US (occurrence: US)
  Receive Date: 20130612
  Receipt Date: 20130612
  Transmission Date: 20140414
  Serious: Yes (Death)
  Sender: FDA-Public Use
  Company Number: PHEH2013US012616

PATIENT
  Age: 35 Year
  Sex: Male

DRUGS (2)
  1. FANAPT [Suspect]
     Dosage: 2 MG, BID
     Route: 048
  2. THORAZINE [Concomitant]
     Dosage: 50 MG, TID

REACTIONS (2)
  - Pulmonary embolism [Fatal]
  - Hypotension [Fatal]
